FAERS Safety Report 7457392-9 (Version None)
Quarter: 2011Q1

REPORT INFORMATION
  Report Type: 
  Country: None (occurrence: None)
  Receive Date: 20110302
  Receipt Date: 20101209
  Transmission Date: 20110831
  Serious: Yes (Death, Other)
  Sender: FDA-Public Use
  Company Number: 163-20785-10070228

PATIENT

DRUGS (5)
  1. CLARITHROMYCIN [Suspect]
     Indication: MULTIPLE MYELOMA
     Dosage: 500 MG, BID
  2. DEXAMETHASONE [Suspect]
     Indication: MULTIPLE MYELOMA
     Dosage: 40 MG, DAYS 1,8,15,22 OF A 28 DAY CYCLE
  3. REVLIMID [Suspect]
     Indication: MULTIPLE MYELOMA
     Dosage: 25 MG, DAILY DAYS 1-21 OF 28 DAYS CYCLE, PO
     Route: 048
  4. ASPIRIN [Concomitant]
  5. THALOMID [Suspect]
     Indication: MULTIPLE MYELOMA
     Dosage: 50/100MG, DAILY FOR THE FIRST WEEK/DAILY THEREAFTER, PO
     Route: 048

REACTIONS (10)
  - MULTIPLE MYELOMA [None]
  - RASH [None]
  - STEVENS-JOHNSON SYNDROME [None]
  - CHEST PAIN [None]
  - TRANSIENT ISCHAEMIC ATTACK [None]
  - DEEP VEIN THROMBOSIS [None]
  - MYOPATHY [None]
  - ATRIAL FIBRILLATION [None]
  - RENAL FAILURE [None]
  - PNEUMONIA [None]
